FAERS Safety Report 7967748-3 (Version None)
Quarter: 2011Q4

REPORT INFORMATION
  Report Type: 
  Country: None (occurrence: None)
  Receive Date: 20111209
  Receipt Date: 20111209
  Transmission Date: 20120403
  Serious: Yes (Death, Other)
  Sender: FDA-Public Use
  Company Number: None

PATIENT
  Age: 78 Year
  Sex: Female
  Weight: 45.359 kg

DRUGS (1)
  1. VELCADE [Suspect]
     Indication: MULTIPLE MYELOMA

REACTIONS (5)
  - PULMONARY MYCOSIS [None]
  - LUNG DISORDER [None]
  - PNEUMONIA [None]
  - PNEUMOTHORAX [None]
  - PNEUMONIA BACTERIAL [None]
